FAERS Safety Report 7513496-3 (Version None)
Quarter: 2011Q2

REPORT INFORMATION
  Report Type: 
  Country: None (occurrence: None)
  Receive Date: 20110531
  Receipt Date: 20110516
  Transmission Date: 20111010
  Serious: Yes (Other)
  Sender: FDA-Public Use
  Company Number: US-BAYER-201037785NA

PATIENT
  Age: 29 Year
  Sex: Female
  Weight: 86.168 kg

DRUGS (12)
  1. YASMIN [Suspect]
  2. ZYRTEC-D 12 HOUR [Concomitant]
     Dosage: UNK
     Route: 048
  3. IBUPROFEN [Concomitant]
     Dosage: 200 MG, UNK
     Route: 048
  4. RELAFEN [Concomitant]
     Dosage: 750 MG, UNK
     Route: 048
  5. NASACORT AQ [Concomitant]
     Dosage: UNK
     Route: 045
     Dates: start: 20061006
  6. PATANOL [Concomitant]
     Dosage: UNK UNK, BID
     Route: 047
     Dates: start: 20061006
  7. YASMIN [Suspect]
     Indication: MENSTRUATION IRREGULAR
  8. RELPAX [Concomitant]
     Dosage: 40 MG, PRN
     Route: 048
     Dates: start: 20060315
  9. ASCORBIC ACID [Concomitant]
     Dosage: 500 MG, QD
     Route: 048
  10. AMOXICILLIN [Concomitant]
     Dosage: 875 MG, UNK
     Route: 048
     Dates: start: 20060101
  11. YASMIN [Suspect]
     Indication: CONTRACEPTION
     Dosage: UNK
     Route: 048
     Dates: start: 20030101, end: 20070401
  12. YASMIN [Suspect]
     Indication: PREMENSTRUAL SYNDROME

REACTIONS (5)
  - CHOLELITHIASIS [None]
  - ABDOMINAL PAIN UPPER [None]
  - NAUSEA [None]
  - VOMITING [None]
  - CHOLECYSTITIS [None]
